FAERS Safety Report 5241587-9 (Version None)
Quarter: 2007Q1

REPORT INFORMATION
  Report Type: 
  Country: None (occurrence: None)
  Receive Date: 20070220
  Receipt Date: 20070212
  Transmission Date: 20070707
  Serious: Yes (Hospitalization)
  Sender: FDA-Public Use
  Company Number: PL-BRISTOL-MYERS SQUIBB COMPANY-13604905

PATIENT
  Age: 70 Year
  Sex: Female

DRUGS (7)
  1. ABATACEPT [Suspect]
     Indication: RHEUMATOID ARTHRITIS
     Route: 042
     Dates: start: 20030626, end: 20061005
  2. METHOTREXATE SODIUM [Suspect]
     Route: 048
     Dates: start: 20000601, end: 20061101
  3. PREDNISONE [Concomitant]
     Dates: start: 20000101
  4. PERINDOPRIL ERBUMINE [Concomitant]
     Dates: start: 19970101
  5. ATENOLOL [Concomitant]
     Dates: start: 19970101, end: 20061101
  6. INDAPAMIDE [Concomitant]
     Dates: start: 20000101
  7. FOLIC ACID [Concomitant]
     Dates: start: 20000101

REACTIONS (2)
  - ERYSIPELAS [None]
  - SKIN ULCER [None]
